FAERS Safety Report 25003894 (Version 2)
Quarter: 2025Q1

REPORT INFORMATION
  Report Type: Spontaneous
  Country: CH (occurrence: CH)
  Receive Date: 20250224
  Receipt Date: 20250314
  Transmission Date: 20250409
  Serious: Yes (Death, Hospitalization, Other)
  Sender: BAYER HEALTHCARE PHARMACEUTICALS INC.
  Company Number: CH-BAYER-2025A024339

PATIENT
  Age: 82 Year
  Sex: Male
  Weight: 66.5 kg

DRUGS (13)
  1. ADEMPAS [Suspect]
     Active Substance: RIOCIGUAT
     Indication: Pulmonary hypertension
     Dates: start: 20170710
  2. XARELTO [Suspect]
     Active Substance: RIVAROXABAN
     Indication: Pulmonary embolism
  3. TORSEMIDE [Concomitant]
     Active Substance: TORSEMIDE
  4. DAFALGAN [Concomitant]
     Active Substance: ACETAMINOPHEN
  5. SODIUM PICOSULFATE [Concomitant]
     Active Substance: SODIUM PICOSULFATE
  6. PANTOPRAZOLE [Concomitant]
     Active Substance: PANTOPRAZOLE
  7. FORMIC ACID [Concomitant]
     Active Substance: FORMIC ACID
  8. REMERON [Concomitant]
     Active Substance: MIRTAZAPINE
  9. ZOLPIDEM TARTRATE [Concomitant]
     Active Substance: ZOLPIDEM TARTRATE
  10. OLODATEROL HYDROCHLORIDE\TIOTROPIUM BROMIDE MONOHYDRATE [Concomitant]
     Active Substance: OLODATEROL HYDROCHLORIDE\TIOTROPIUM BROMIDE MONOHYDRATE
  11. VENTOLIN [Concomitant]
     Active Substance: ALBUTEROL SULFATE
  12. PULMICORT TURBUHALER [Concomitant]
     Active Substance: BUDESONIDE
  13. OXYGEN [Concomitant]
     Active Substance: OXYGEN

REACTIONS (20)
  - Death [Fatal]
  - Urinary retention [None]
  - Urinary tract infection [None]
  - Prostatitis [None]
  - Hyperventilation [None]
  - Arteriosclerosis coronary artery [None]
  - Chronic obstructive pulmonary disease [None]
  - Influenza [None]
  - Pneumonia [None]
  - Pulmonary embolism [None]
  - Diastolic dysfunction [None]
  - Hypertension [None]
  - Pulmonary oedema [None]
  - Renal failure [None]
  - Lymphoedema [None]
  - Hernia [None]
  - Diverticulum intestinal [None]
  - Blood loss anaemia [None]
  - Gastrointestinal haemorrhage [None]
  - Back pain [None]

NARRATIVE: CASE EVENT DATE: 20190301
